FAERS Safety Report 8434066-9 (Version None)
Quarter: 2012Q2

REPORT INFORMATION
  Report Type: 
  Country: None (occurrence: None)
  Receive Date: 20120613
  Receipt Date: 20120604
  Transmission Date: 20120825
  Serious: Yes (Other)
  Sender: FDA-Public Use
  Company Number: US-ASTRAZENECA-2010SE22792

PATIENT
  Age: 83 Year
  Sex: Female
  Weight: 90.7 kg

DRUGS (6)
  1. SEROQUEL [Suspect]
     Indication: ABNORMAL BEHAVIOUR
     Route: 048
  2. SEROQUEL [Suspect]
     Route: 048
  3. SEROQUEL [Suspect]
     Indication: EMOTIONAL DISORDER
     Route: 048
  4. SEROQUEL [Suspect]
     Indication: DEMENTIA
     Route: 048
  5. SEROQUEL [Suspect]
     Route: 048
  6. SEROQUEL [Suspect]
     Route: 048

REACTIONS (3)
  - RIB FRACTURE [None]
  - PNEUMONIA [None]
  - FALL [None]
